FAERS Safety Report 4972144-7 (Version None)
Quarter: 2006Q2

REPORT INFORMATION
  Report Type: 
  Country: None (occurrence: None)
  Receive Date: 20060413
  Receipt Date: 20060331
  Transmission Date: 20061013
  Serious: Yes (Death, Hospitalization)
  Sender: FDA-Public Use
  Company Number: AU-NOVOPROD-252086

PATIENT
  Age: 56 Year
  Sex: Female
  Weight: 98 kg

DRUGS (11)
  1. NOVOSEVEN [Suspect]
     Indication: HAEMORRHAGE
     Dosage: 9.6 MG, UNK
     Dates: start: 20051005, end: 20051005
  2. ASPIRIN [Concomitant]
  3. APROTININ [Concomitant]
  4. PROTAMINE SULFATE [Concomitant]
  5. HEPARIN [Concomitant]
  6. PROTHROMBINEX [Concomitant]
  7. RED BLOOD CELLS [Concomitant]
     Dosage: 10 IU, UNK
  8. FRESH FROZEN PLASMA [Concomitant]
     Dosage: 8 IU, UNK
  9. KRIOPRECIPITAT [Concomitant]
     Dosage: 7 IU, UNK
  10. PLATELETS [Concomitant]
     Dosage: 2 IU, UNK
  11. CALCIUM GLUCONATE [Concomitant]

REACTIONS (10)
  - CEREBROVASCULAR ACCIDENT [None]
  - EMBOLISM [None]
  - LIVER FUNCTION TEST ABNORMAL [None]
  - LOWER RESPIRATORY TRACT INFECTION [None]
  - MYOCARDIAL ISCHAEMIA [None]
  - PLEURAL EFFUSION [None]
  - PNEUMONIA [None]
  - POSTOPERATIVE INFECTION [None]
  - RESPIRATORY DEPRESSION [None]
  - SINUSITIS [None]
